FAERS Safety Report 6498036-2 (Version None)
Quarter: 2009Q4

REPORT INFORMATION
  Report Type: 
  Country: None (occurrence: None)
  Receive Date: 20091215
  Receipt Date: 20091207
  Transmission Date: 20100525
  Serious: Yes (Hospitalization)
  Sender: FDA-Public Use
  Company Number: PHHY2009BE43977

PATIENT
  Age: 82 Year
  Sex: Male

DRUGS (1)
  1. ACLASTA [Suspect]
     Dosage: UNK
     Dates: start: 20090924

REACTIONS (7)
  - AGITATION [None]
  - CEREBROVASCULAR ACCIDENT [None]
  - CONFUSIONAL STATE [None]
  - ISCHAEMIA [None]
  - MONOPARESIS [None]
  - PYREXIA [None]
  - THROMBOSIS [None]
